FAERS Safety Report 4666255-3 (Version None)
Quarter: 2005Q2

REPORT INFORMATION
  Report Type: 
  Country: None (occurrence: None)
  Receive Date: 20050518
  Receipt Date: 20050510
  Transmission Date: 20051028
  Serious: Yes (Other)
  Sender: FDA-Public Use
  Company Number: USA-2005-0020165

PATIENT
  Age: 47 Year
  Sex: Male

DRUGS (2)
  1. OXYCONTIN [Suspect]
     Indication: PAIN
     Dosage: 80 MG, SEE TEXT
  2. OXYCODONE HCL [Suspect]
     Indication: PAIN
     Dosage: 15 MG, SEE TEXT

REACTIONS (11)
  - AMNESIA [None]
  - DEPRESSION [None]
  - DRUG ABUSER [None]
  - DRUG DEPENDENCE [None]
  - DRUG WITHDRAWAL SYNDROME [None]
  - HALLUCINATION [None]
  - LETHARGY [None]
  - LIBIDO DECREASED [None]
  - PANIC ATTACK [None]
  - PARANOIA [None]
  - SUICIDAL IDEATION [None]
